FAERS Safety Report 7361780-9 (Version None)
Quarter: 2011Q1

REPORT INFORMATION
  Report Type: 
  Country: None (occurrence: None)
  Receive Date: 20110318
  Receipt Date: 20110310
  Transmission Date: 20110831
  Serious: Yes (Other)
  Sender: FDA-Public Use
  Company Number: ES-MERCK-1103USA02209

PATIENT
  Age: 81 Year
  Sex: Male

DRUGS (1)
  1. PRINIVIL [Suspect]
     Route: 048

REACTIONS (2)
  - UPPER AIRWAY OBSTRUCTION [None]
  - ANGIOEDEMA [None]
